FAERS Safety Report 17065671 (Version 1)
Quarter: 2019Q4

REPORT INFORMATION
  Report Type: Spontaneous
  Country: US (occurrence: US)
  Receive Date: 20191122
  Receipt Date: 20191122
  Transmission Date: 20200122
  Serious: No
  Sender: FDA-Public Use
  Company Number: US-PERRIGO-19US008909

PATIENT
  Age: 76 Year
  Sex: Male
  Weight: 108.84 kg

DRUGS (7)
  1. TORSEMIDE. [Concomitant]
     Active Substance: TORSEMIDE
     Indication: HYPERTENSION
     Dosage: UNK
     Route: 065
  2. COLACE [Concomitant]
     Active Substance: DOCUSATE SODIUM
     Indication: CONSTIPATION
     Dosage: UNK
     Route: 065
     Dates: start: 201812
  3. POLYETHYLENE GLYCOL 3350. [Suspect]
     Active Substance: POLYETHYLENE GLYCOL 3350
     Indication: CONSTIPATION
     Dosage: 17 G, QD
     Route: 048
     Dates: start: 201903
  4. MINOXIDIL. [Concomitant]
     Active Substance: MINOXIDIL
     Indication: HYPERTENSION
     Dosage: UNK
     Route: 065
  5. LOPRESSOR [Concomitant]
     Active Substance: METOPROLOL TARTRATE
     Indication: HYPERTENSION
     Dosage: UNK
     Route: 065
  6. ALDACTONE [Concomitant]
     Active Substance: SPIRONOLACTONE
     Indication: HYPERTENSION
     Dosage: UNK
     Route: 065
  7. PRINIVIL [Concomitant]
     Active Substance: LISINOPRIL
     Indication: HYPERTENSION
     Dosage: UNK
     Route: 065

REACTIONS (6)
  - Nausea [Unknown]
  - Weight decreased [Unknown]
  - Incorrect product administration duration [Unknown]
  - Inappropriate schedule of product administration [Unknown]
  - Abdominal pain upper [Unknown]
  - Abdominal distension [Unknown]

NARRATIVE: CASE EVENT DATE: 201903
